FAERS Safety Report 6249643-3 (Version None)
Quarter: 2009Q2

REPORT INFORMATION
  Report Type: 
  Country: None (occurrence: None)
  Receive Date: 20090624
  Receipt Date: 20090608
  Transmission Date: 20091009
  Serious: Yes (Hospitalization)
  Sender: FDA-Public Use
  Company Number: 001070

PATIENT
  Sex: Female
  Weight: 64 kg

DRUGS (4)
  1. VIMPAT [Suspect]
     Dosage: (ORAL), (200 MG BID ORAL)
     Route: 048
     Dates: start: 20090127, end: 20090202
  2. VIMPAT [Suspect]
     Dosage: (ORAL), (200 MG BID ORAL)
     Route: 048
     Dates: start: 20090203, end: 20090205
  3. LAMICTAL [Concomitant]
  4. APYDAN          /00596701/ [Concomitant]

REACTIONS (5)
  - EPILEPSY [None]
  - FOOT FRACTURE [None]
  - LUMBAR VERTEBRAL FRACTURE [None]
  - OSTEOSYNTHESIS [None]
  - SOMATOFORM DISORDER [None]
